FAERS Safety Report 10019940 (Version 1)
Quarter: 2014Q1

REPORT INFORMATION
  Report Type: Spontaneous
  Country: US (occurrence: US)
  Receive Date: 20140318
  Receipt Date: 20140318
  Transmission Date: 20141002
  Serious: No
  Sender: FDA-Public Use
  Company Number: US-009507513-1403USA002611

PATIENT
  Age: 73 Year
  Sex: Female

DRUGS (4)
  1. VYTORIN [Suspect]
     Indication: BLOOD CHOLESTEROL
     Dosage: 1 TABLET ONCE A DAY
     Route: 048
     Dates: start: 2009, end: 20140211
  2. NEXIUM [Concomitant]
     Route: 048
  3. ATENOLOL [Concomitant]
  4. ZOLOFT [Concomitant]

REACTIONS (3)
  - Hypothyroidism [Not Recovered/Not Resolved]
  - Medial tibial stress syndrome [Unknown]
  - Myalgia [Not Recovered/Not Resolved]
